FAERS Safety Report 13698355 (Version 1)
Quarter: 2017Q2

REPORT INFORMATION
  Report Type: Spontaneous
  Country: FR (occurrence: FR)
  Receive Date: 20170628
  Receipt Date: 20170628
  Transmission Date: 20170830
  Serious: Yes (Hospitalization)
  Sender: FDA-Public Use
  Company Number: FR-INDIVIOR LIMITED-INDV-102873-2017

PATIENT
  Age: 46 Year
  Sex: Female

DRUGS (7)
  1. NICOTINE. [Suspect]
     Active Substance: NICOTINE
     Indication: PRODUCT USED FOR UNKNOWN INDICATION
     Dosage: 15 TO 20 HAND-ROLLED CIGARETTES PER DAY
     Route: 055
  2. SUBUTEX [Suspect]
     Active Substance: BUPRENORPHINE HYDROCHLORIDE
     Dosage: 8 MG, QD
     Route: 065
  3. LEXOMIL [Suspect]
     Active Substance: BROMAZEPAM
     Indication: PRODUCT USED FOR UNKNOWN INDICATION
     Dosage: ONE TABLET MORNING AND EVENING
     Route: 048
     Dates: end: 201703
  4. HEROIN [Suspect]
     Active Substance: DIAMORPHINE
     Indication: PRODUCT USED FOR UNKNOWN INDICATION
     Dosage: UNK
     Route: 065
  5. SUBUTEX [Suspect]
     Active Substance: BUPRENORPHINE HYDROCHLORIDE
     Indication: PRODUCT USED FOR UNKNOWN INDICATION
     Dosage: 12 MG, UNK
     Route: 045
  6. CANNABIS [Suspect]
     Active Substance: CANNABIS SATIVA SUBSP. INDICA TOP
     Indication: PRODUCT USED FOR UNKNOWN INDICATION
     Dosage: 10 JOINTS PER DAY
     Route: 055
     Dates: start: 1997, end: 2000
  7. ALCOHOL. [Suspect]
     Active Substance: ALCOHOL
     Indication: PRODUCT USED FOR UNKNOWN INDICATION
     Dosage: UNK
     Route: 048
     Dates: start: 1987

REACTIONS (9)
  - Incorrect route of drug administration [Unknown]
  - Intentional underdose [Unknown]
  - Drug use disorder [Not Recovered/Not Resolved]
  - Intentional product misuse [Not Recovered/Not Resolved]
  - Withdrawal syndrome [Recovered/Resolved]
  - Hepatitis C [Unknown]
  - Alcohol abuse [Not Recovered/Not Resolved]
  - Product use issue [Unknown]
  - Drug use disorder [Unknown]

NARRATIVE: CASE EVENT DATE: 201703
